FAERS Safety Report 12472944 (Version 2)
Quarter: 2016Q3

REPORT INFORMATION
  Report Type: Spontaneous
  Country: RO (occurrence: RO)
  Receive Date: 20160616
  Receipt Date: 20160706
  Transmission Date: 20161109
  Serious: Yes (Hospitalization, Other)
  Sender: FDA-Public Use
  Company Number: RO-BAYER-2016-110692

PATIENT
  Age: 32 Year
  Sex: Female

DRUGS (2)
  1. CIPROFLOXACIN MONOHYDROCHLORIDE [Suspect]
     Active Substance: CIPROFLOXACIN
     Indication: PNEUMONIA
     Dosage: UNK
  2. MEROPENEM. [Concomitant]
     Active Substance: MEROPENEM
     Dosage: UNK

REACTIONS (12)
  - Rhinorrhoea [None]
  - Q fever [None]
  - Dyspnoea [None]
  - Pneumonia [None]
  - Productive cough [None]
  - Pyrexia [None]
  - Chills [None]
  - Clostridium test positive [None]
  - Faeces discoloured [None]
  - H1N1 influenza [None]
  - Myalgia [None]
  - Diarrhoea [None]
